FAERS Safety Report 10958726 (Version 1)
Quarter: 2015Q1

REPORT INFORMATION
  Report Type: Spontaneous
  Country: US (occurrence: US)
  Receive Date: 20150326
  Receipt Date: 20150326
  Transmission Date: 20150721
  Serious: Yes (Hospitalization)
  Sender: FDA-Public Use
  Company Number: US-BAYER-2015-060420

PATIENT
  Age: 47 Year
  Sex: Female

DRUGS (1)
  1. MIRENA [Suspect]
     Active Substance: LEVONORGESTREL
     Indication: PREMENSTRUAL DYSPHORIC DISORDER
     Dosage: 20 MCG/24HR, CONT
     Route: 015
     Dates: start: 20150217

REACTIONS (3)
  - Off label use [None]
  - Headache [Not Recovered/Not Resolved]
  - Migraine [None]

NARRATIVE: CASE EVENT DATE: 20150217
